FAERS Safety Report 19408126 (Version 1)
Quarter: 2021Q2

REPORT INFORMATION
  Report Type: Spontaneous
  Country: NO (occurrence: NO)
  Receive Date: 20210611
  Receipt Date: 20210611
  Transmission Date: 20210717
  Serious: Yes (Death, Other)
  Sender: FDA-Public Use
  Company Number: NO-PFIZER INC-2021638707

PATIENT
  Age: 80 Year
  Sex: Male

DRUGS (19)
  1. NEURONTIN [Suspect]
     Active Substance: GABAPENTIN
     Indication: PAIN IN EXTREMITY
     Dosage: INITIAL START DOSE 300 MG, WHICH WAS INCREASED GRADUALLY UP TO 300 MG X3 ON 05APR2021
     Route: 048
     Dates: start: 20210403, end: 20210406
  2. AMLODIPINE [Concomitant]
     Active Substance: AMLODIPINE BESYLATE
     Indication: HYPERTENSION
     Dosage: 10 MG, 1X/DAY
     Route: 048
  3. TRAMAGETIC OD [Interacting]
     Active Substance: TRAMADOL HYDROCHLORIDE
     Indication: PAIN IN EXTREMITY
     Dosage: 100 MG, 2X/DAY
     Route: 048
     Dates: start: 20210401, end: 20210402
  4. TRAMAGETIC OD [Interacting]
     Active Substance: TRAMADOL HYDROCHLORIDE
     Dosage: 150 MG, 2X/DAY
     Route: 048
     Dates: start: 20210404, end: 20210406
  5. PARALGIN FORTE [CODEINE PHOSPHATE;PARACETAMOL] [Concomitant]
     Indication: PAIN IN EXTREMITY
     Dosage: 1 TABLET ONE TO TWO TIMES A DAY. SPORADIC USE ON 03/APR OG 04/APR/ OCCASIONALLY
     Dates: start: 20210305, end: 20210404
  6. DUTASTERIDE/TAMSULOSIN ORION [Concomitant]
     Dosage: 1 DF, 1X/DAY
  7. ENALAPRIL COMP RATIOPHARM [Concomitant]
     Active Substance: ENALAPRIL
     Indication: HYPERTENSION
     Dosage: 0.5 DF, 1X/DAY
     Route: 048
  8. BETMIGA [Concomitant]
     Active Substance: MIRABEGRON
     Dosage: 50 MG, 1X/DAY
  9. BACTRIM [Concomitant]
     Active Substance: SULFAMETHOXAZOLE\TRIMETHOPRIM
     Indication: INFECTION
     Dosage: 2 DF EVERY 12 HOURS FOR 4 MONTHS
  10. METHYL B12 [Concomitant]
     Active Substance: METHYLCOBALAMIN
     Dosage: 100 UG, 1X/DAY
  11. EZETIMIB KRKA [Concomitant]
     Dosage: UNK
  12. TRAMAGETIC OD [Interacting]
     Active Substance: TRAMADOL HYDROCHLORIDE
     Dosage: 175 MG, 2X/DAY
     Route: 048
     Dates: start: 20210403, end: 20210403
  13. PLAVIX [Concomitant]
     Active Substance: CLOPIDOGREL BISULFATE
     Dosage: 75 MG, 1X/DAY
  14. AZITROMAX [Concomitant]
     Active Substance: AZITHROMYCIN ANHYDROUS
     Indication: INFECTION
     Dosage: 500 MG, 1X/DAY
  15. PARACET [PARACETAMOL] [Interacting]
     Active Substance: ACETAMINOPHEN
     Indication: PAIN IN EXTREMITY
     Dosage: 1 G EVERY 6 HOURS
     Route: 048
     Dates: start: 20210330, end: 20210406
  16. FUROSEMID [Concomitant]
     Active Substance: FUROSEMIDE
     Dosage: 40 MG, 1X/DAY
  17. ALLOPURINOL ORION [Concomitant]
     Active Substance: ALLOPURINOL
     Dosage: 300 MG, 1X/DAY
  18. MOXONIDIN [Concomitant]
     Active Substance: MOXONIDINE
     Indication: HYPERTENSION
     Dosage: 0.2 MG, 1X/DAY
  19. CARVEDILOL AUROBINDO [Concomitant]
     Active Substance: CARVEDILOL
     Dosage: 6.25 MG MORNING, AND 12.5 MG EVENING

REACTIONS (5)
  - Cardiac arrest [Fatal]
  - Analgesic drug level increased [Fatal]
  - Toxicity to various agents [Fatal]
  - Drug interaction [Fatal]
  - Renal failure [Unknown]

NARRATIVE: CASE EVENT DATE: 20210405
